FAERS Safety Report 23780630 (Version 4)
Quarter: 2024Q2

REPORT INFORMATION
  Report Type: Report from Study
  Country: AR (occurrence: AR)
  Receive Date: 20240425
  Receipt Date: 20240608
  Transmission Date: 20240716
  Serious: Yes (Death, Other)
  Sender: FDA-Public Use
  Company Number: AR-AMGEN-ARGSL2023226574

PATIENT
  Age: 66 Year
  Sex: Female

DRUGS (4)
  1. VECTIBIX [Suspect]
     Active Substance: PANITUMUMAB
     Indication: Colorectal cancer
     Dosage: UNK, Q2WK, BIWEEKLY
     Route: 065
     Dates: start: 20230927, end: 2023
  2. VECTIBIX [Suspect]
     Active Substance: PANITUMUMAB
     Dosage: UNK, Q3WK, 21 DAYS
     Route: 065
     Dates: start: 2023
  3. VECTIBIX [Suspect]
     Active Substance: PANITUMUMAB
     Dosage: UNK, Q2WK, 14 DAYS
     Route: 065
  4. VECTIBIX [Suspect]
     Active Substance: PANITUMUMAB
     Dosage: UNK 15 DAYS
     Route: 065

REACTIONS (7)
  - Death [Fatal]
  - Ascites [Not Recovered/Not Resolved]
  - Liver disorder [Not Recovered/Not Resolved]
  - Adverse drug reaction [Unknown]
  - Urinary tract infection [Unknown]
  - Fatigue [Unknown]
  - Off label use [Unknown]

NARRATIVE: CASE EVENT DATE: 20230101
